FAERS Safety Report 18387086 (Version 5)
Quarter: 2021Q2

REPORT INFORMATION
  Report Type: Report from Study
  Country: CO (occurrence: CO)
  Receive Date: 20201015
  Receipt Date: 20210407
  Transmission Date: 20210717
  Serious: Yes (Hospitalization, Other)
  Sender: FDA-Public Use
  Company Number: NVSC2020CO275439

PATIENT
  Age: 57 Year
  Sex: Female
  Weight: 80 kg

DRUGS (5)
  1. FEMARA [Suspect]
     Active Substance: LETROZOLE
     Indication: BREAST CANCER
     Dosage: 2 MG, QD
     Route: 048
     Dates: start: 20190422
  2. METFORMIN [Suspect]
     Active Substance: METFORMIN HYDROCHLORIDE
     Indication: DIABETES MELLITUS
     Dosage: 850 MG, QD (3 YRS AGO)
     Route: 065
  3. METOPROLOL. [Suspect]
     Active Substance: METOPROLOL
     Indication: PRODUCT USED FOR UNKNOWN INDICATION
     Dosage: 50 MG, QD (4 YRS AGO)
     Route: 048
  4. KISQALI [Suspect]
     Active Substance: RIBOCICLIB
     Indication: BREAST CANCER
     Dosage: 600 MG, QD (TABLET OF 200 MG)
     Route: 048
     Dates: start: 20190422
  5. LEVOTHYROXINE. [Concomitant]
     Active Substance: LEVOTHYROXINE
     Indication: HYPOTHYROIDISM
     Dosage: 100 MG, QD (4 YEARS AGO)
     Route: 048

REACTIONS (18)
  - Hypoaesthesia [Unknown]
  - Asthenia [Unknown]
  - Blood potassium decreased [Unknown]
  - Metastases to spine [Unknown]
  - Breast pain [Unknown]
  - Breast cancer [Unknown]
  - Alopecia [Unknown]
  - Off label use [Unknown]
  - Musculoskeletal chest pain [Unknown]
  - Oral mucosal exfoliation [Unknown]
  - Metastases to bone [Unknown]
  - Blood calcium decreased [Unknown]
  - Decreased appetite [Unknown]
  - Paraesthesia [Unknown]
  - Musculoskeletal discomfort [Unknown]
  - Tremor [Unknown]
  - Back pain [Unknown]
  - Pain [Unknown]

NARRATIVE: CASE EVENT DATE: 2020
